FAERS Safety Report 7119200-5 (Version None)
Quarter: 2010Q4

REPORT INFORMATION
  Report Type: 
  Country: None (occurrence: None)
  Receive Date: 20101123
  Receipt Date: 20100623
  Transmission Date: 20110411
  Serious: No
  Sender: FDA-Public Use
  Company Number: US-MYLANLABS-2010S1011392

PATIENT
  Age: 43 Year
  Sex: Female
  Weight: 93.9 kg

DRUGS (2)
  1. MAXZIDE [Suspect]
     Indication: HYPERTENSION
     Route: 048
     Dates: start: 19970101
  2. MAXZIDE [Suspect]
     Route: 048
     Dates: start: 19970101

REACTIONS (3)
  - ANXIETY [None]
  - PALPITATIONS [None]
  - TREMOR [None]
